FAERS Safety Report 17336233 (Version 1)
Quarter: 2020Q1

REPORT INFORMATION
  Report Type: Spontaneous
  Country: IT (occurrence: IT)
  Receive Date: 20200128
  Receipt Date: 20200128
  Transmission Date: 20200409
  Serious: Yes (Disabling)
  Sender: FDA-Public Use
  Company Number: IT-MYLANLABS-2020M1009251

PATIENT
  Age: 30 Year
  Sex: Male
  Weight: 84 kg

DRUGS (1)
  1. ISDIBEN [Suspect]
     Active Substance: ISOTRETINOIN
     Indication: ACNE
     Dosage: 10 MILLIGRAM, QD
     Route: 048
     Dates: start: 20190911

REACTIONS (2)
  - Tendonitis [Unknown]
  - Libido decreased [Unknown]

NARRATIVE: CASE EVENT DATE: 20191015
